FAERS Safety Report 17370094 (Version 1)
Quarter: 2020Q1

REPORT INFORMATION
  Report Type: Spontaneous
  Country: FR (occurrence: FR)
  Receive Date: 20200205
  Receipt Date: 20200205
  Transmission Date: 20200409
  Serious: Yes (Hospitalization)
  Sender: FDA-Public Use
  Company Number: FR-ZYDUS-047117

PATIENT
  Age: 84 Year
  Sex: Female

DRUGS (8)
  1. FUROSEMIDE. [Suspect]
     Active Substance: FUROSEMIDE
     Indication: ATRIOVENTRICULAR BLOCK
     Route: 048
     Dates: end: 20191201
  2. ATORVASTATIN [Concomitant]
     Active Substance: ATORVASTATIN
     Indication: ATRIOVENTRICULAR BLOCK
  3. PANTOPRAZOLE [Concomitant]
     Active Substance: PANTOPRAZOLE
     Indication: PRODUCT USED FOR UNKNOWN INDICATION
     Route: 048
     Dates: start: 20191231
  4. POTASSIUM [Concomitant]
     Active Substance: POTASSIUM
     Indication: PRODUCT USED FOR UNKNOWN INDICATION
     Route: 048
     Dates: start: 20191231
  5. RAMIPRIL. [Suspect]
     Active Substance: RAMIPRIL
     Indication: CARDIAC ASSISTANCE DEVICE USER
     Route: 048
     Dates: end: 20191231
  6. SPIRONOLACTONE. [Suspect]
     Active Substance: SPIRONOLACTONE
     Indication: ATRIOVENTRICULAR BLOCK
     Route: 048
     Dates: end: 20191231
  7. BISOPROLOL [Suspect]
     Active Substance: BISOPROLOL
     Indication: ATRIOVENTRICULAR BLOCK
     Route: 048
     Dates: end: 20191231
  8. OXAZEPAM. [Concomitant]
     Active Substance: OXAZEPAM
     Indication: PRODUCT USED FOR UNKNOWN INDICATION
     Route: 048

REACTIONS (2)
  - Acute kidney injury [Recovering/Resolving]
  - Hypovolaemic shock [Recovered/Resolved]

NARRATIVE: CASE EVENT DATE: 20191231
